FAERS Safety Report 16017064 (Version 1)
Quarter: 2019Q1

REPORT INFORMATION
  Report Type: Spontaneous
  Country: US (occurrence: US)
  Receive Date: 20190131
  Receipt Date: 20190131
  Transmission Date: 20190418
  Serious: No
  Sender: FDA-Public Use
  Company Number: None

PATIENT
  Age: 78 Year
  Sex: Male
  Weight: 61.2 kg

DRUGS (12)
  1. GINKGO [Concomitant]
     Active Substance: GINKGO
  2. VITAMIN A [Suspect]
     Active Substance: VITAMIN A
  3. HYDROXYUREA. [Suspect]
     Active Substance: HYDROXYUREA
     Indication: MYELOPROLIFERATIVE NEOPLASM
  4. ANAGRELIDE. [Concomitant]
     Active Substance: ANAGRELIDE HYDROCHLORIDE
  5. ASPIRIN. [Concomitant]
     Active Substance: ASPIRIN
  6. JAKAFI [Suspect]
     Active Substance: RUXOLITINIB
     Indication: OFF LABEL USE
  7. SAW PALMETTO [Concomitant]
     Active Substance: HERBALS\SAW PALMETTO
  8. CALCIUM 500 + D [Concomitant]
     Active Substance: CALCIUM\VITAMIN D
  9. LEVOCARNITINE. [Concomitant]
     Active Substance: LEVOCARNITINE
  10. HYDROXYUREA. [Suspect]
     Active Substance: HYDROXYUREA
     Indication: POLYCYTHAEMIA VERA
  11. MULTIVITAMIN [Concomitant]
     Active Substance: VITAMINS
  12. MYLERAN [Suspect]
     Active Substance: BUSULFAN

REACTIONS (3)
  - Drug ineffective [None]
  - Dermatitis [None]
  - Rash pruritic [None]
